FAERS Safety Report 9414380 (Version 1)
Quarter: 2013Q3

REPORT INFORMATION
  Report Type: Report from Study
  Country: AU (occurrence: AU)
  Receive Date: 20130723
  Receipt Date: 20130723
  Transmission Date: 20140515
  Serious: Yes (Other)
  Sender: FDA-Public Use
  Company Number: AU-ASTELLAS-2013US007734

PATIENT
  Sex: Female

DRUGS (1)
  1. ERLOTINIB TABLET [Suspect]
     Indication: EGFR GENE MUTATION
     Dosage: 150 MG, UID/QD
     Route: 065

REACTIONS (5)
  - Off label use [Unknown]
  - Odynophagia [Unknown]
  - Mucosal inflammation [Unknown]
  - Blister [Unknown]
  - Rash [Unknown]
